FAERS Safety Report 7910376-6 (Version None)
Quarter: 2011Q4

REPORT INFORMATION
  Report Type: 
  Country: None (occurrence: None)
  Receive Date: 20111111
  Receipt Date: 20111110
  Transmission Date: 20120403
  Serious: Yes (Other)
  Sender: FDA-Public Use
  Company Number: US-PFIZER INC-K201100305

PATIENT
  Sex: Female
  Weight: 55 kg

DRUGS (8)
  1. METFORMIN HCL [Suspect]
     Indication: BLOOD GLUCOSE ABNORMAL
     Dosage: UNK
  2. LEVOXYL [Suspect]
     Indication: THYROID DISORDER
     Dosage: UNK
  3. ACCUPRIL [Suspect]
     Indication: BLOOD PRESSURE ABNORMAL
     Dosage: UNK
  4. METOPROLOL TARTRATE [Suspect]
     Dosage: UNK
  5. ZANTAC [Suspect]
     Dosage: UNK
  6. ACETYLSALICYLIC ACID SRT [Suspect]
     Dosage: UNK
  7. AMITRIPTYLINE HCL [Suspect]
     Dosage: UNK
  8. LIPITOR [Suspect]
     Indication: BLOOD CHOLESTEROL ABNORMAL
     Dosage: UNK

REACTIONS (2)
  - CHEST PAIN [None]
  - CORONARY ARTERY OCCLUSION [None]
